FAERS Safety Report 9373199 (Version 7)
Quarter: 2013Q3

REPORT INFORMATION
  Report Type: Report from Study
  Country: US (occurrence: US)
  Receive Date: 20130627
  Receipt Date: 20130913
  Transmission Date: 20140515
  Serious: Yes (Death, Hospitalization, Disabling, Other)
  Sender: FDA-Public Use
  Company Number: US-BRISTOL-MYERS SQUIBB COMPANY-18972067

PATIENT
  Age: 80 Year
  Sex: Male
  Weight: 168 kg

DRUGS (19)
  1. BLINDED: BYDUREON [Suspect]
     Indication: TYPE 2 DIABETES MELLITUS
     Dosage: LAST DOSE:27NOV2011
     Dates: start: 20110510, end: 20111127
  2. PLACEBO [Suspect]
     Indication: TYPE 2 DIABETES MELLITUS
     Dosage: LAST DOSE:27-NOV-2011
     Dates: start: 20110510, end: 20111127
  3. MIRTAZAPINE [Concomitant]
     Indication: ANTIDEPRESSANT THERAPY
     Dosage: THERAPY ON 17FEB13
     Route: 048
     Dates: start: 20130122
  4. METOPROLOL TARTRATE [Concomitant]
     Indication: HYPERTENSION
     Dosage: DOSE VALUE:50MG BID
     Route: 048
     Dates: start: 20130217
  5. SIMVASTATIN [Concomitant]
     Indication: HYPERLIPIDAEMIA
     Route: 048
     Dates: start: 20111109
  6. DILTIAZEM HCL [Concomitant]
     Indication: HYPERTENSION
     Route: 048
     Dates: start: 20130217
  7. CARAFATE [Concomitant]
     Indication: GASTRITIS
     Route: 048
     Dates: start: 20130401
  8. PROTONIX [Concomitant]
     Indication: GASTRITIS
     Route: 048
     Dates: start: 20130402
  9. DONEPEZIL [Concomitant]
     Indication: AMNESIA
     Dosage: DOSE:5MG ON 11MAR13 QD
     Route: 048
     Dates: start: 20130309
  10. DONEPEZIL [Concomitant]
     Indication: DEMENTIA
     Dosage: DOSE:5MG ON 11MAR13 QD
     Route: 048
     Dates: start: 20130309
  11. GLIMEPIRIDE [Concomitant]
     Indication: DIABETES MELLITUS
     Dosage: TABS,4MG 17FEB13--40MG
     Route: 048
     Dates: start: 20110820
  12. INSULIN [Concomitant]
     Indication: DIABETES MELLITUS
     Dosage: 1DF=64 UNITS?INSULIN INJ SOL
     Dates: start: 20130409
  13. FERROUS SULFATE [Concomitant]
     Indication: ANAEMIA
     Route: 048
     Dates: start: 20130401
  14. HYDRALAZINE [Concomitant]
     Indication: HYPERTENSION
     Route: 048
     Dates: start: 20121202
  15. PRAVASTATIN SODIUM [Concomitant]
     Indication: HYPERLIPIDAEMIA
     Route: 048
     Dates: start: 20130128
  16. SUCRALFATE [Concomitant]
     Indication: GASTRITIS
     Route: 048
     Dates: start: 20130426
  17. NITROSTAT [Concomitant]
     Indication: CHEST PAIN
     Route: 048
     Dates: start: 20040210
  18. NOVOLOG [Concomitant]
     Indication: DIABETES MELLITUS
     Dosage: 34 UINTS AM AND 30 UNITS PM
     Route: 058
     Dates: start: 20130409
  19. PANTOPRAZOLE [Concomitant]
     Indication: GASTRITIS
     Route: 048
     Dates: start: 20130401

REACTIONS (4)
  - Pancreatic carcinoma [Fatal]
  - Hydronephrosis [Not Recovered/Not Resolved]
  - Pancreatitis [Recovered/Resolved with Sequelae]
  - Hepatic lesion [Not Recovered/Not Resolved]
